FAERS Safety Report 5838893-3 (Version None)
Quarter: 2008Q3

REPORT INFORMATION
  Report Type: 
  Country: None (occurrence: None)
  Receive Date: 20080808
  Receipt Date: 20080730
  Transmission Date: 20090109
  Serious: Yes (Other)
  Sender: FDA-Public Use
  Company Number: CH-ABBOTT-08P-151-0468806-00

PATIENT
  Age: 62 Year
  Sex: Male

DRUGS (4)
  1. RITONAVIR SOFT GELATIN CAPSULES [Suspect]
     Indication: HIV INFECTION
     Route: 048
  2. VARDENAFIL [Interacting]
     Indication: ORGANIC ERECTILE DYSFUNCTION
     Route: 048
     Dates: start: 20080101, end: 20080101
  3. NELFINAVIR [Interacting]
     Indication: HIV INFECTION
     Route: 048
  4. SAQUINAVIR [Interacting]
     Indication: HIV INFECTION
     Route: 048

REACTIONS (2)
  - LABELLED DRUG-DRUG INTERACTION MEDICATION ERROR [None]
  - PAIN IN EXTREMITY [None]
